FAERS Safety Report 11888954 (Version 2)
Quarter: 2016Q1

REPORT INFORMATION
  Report Type: Spontaneous
  Country: US (occurrence: US)
  Receive Date: 20160105
  Receipt Date: 20160303
  Transmission Date: 20160526
  Serious: Yes (Other)
  Sender: FDA-Public Use
  Company Number: US-PFIZER INC-2015438816

PATIENT
  Age: 17 Year
  Sex: Female
  Weight: 56.7 kg

DRUGS (1)
  1. SERTRALINE HCL [Suspect]
     Active Substance: SERTRALINE HYDROCHLORIDE
     Indication: DEPRESSION
     Dosage: 100 MG, 1X/DAY
     Dates: start: 200601, end: 2012

REACTIONS (4)
  - Mania [Recovered/Resolved]
  - Anxiety [Recovered/Resolved]
  - Drug ineffective for unapproved indication [Recovered/Resolved]
  - Obsessive-compulsive disorder [Recovered/Resolved]

NARRATIVE: CASE EVENT DATE: 2010
